FAERS Safety Report 17984081 (Version 1)
Quarter: 2020Q3

REPORT INFORMATION
  Report Type: Spontaneous
  Country: GB (occurrence: GB)
  Receive Date: 20200706
  Receipt Date: 20200706
  Transmission Date: 20201103
  Serious: Yes (Other)
  Sender: FDA-Public Use
  Company Number: GB-MYLANLABS-2020M1060556

PATIENT
  Sex: Female

DRUGS (2)
  1. CLOZARIL [Suspect]
     Active Substance: CLOZAPINE
     Indication: SCHIZOPHRENIA
     Dosage: UNK
     Route: 048
     Dates: start: 20200619
  2. CLOZARIL [Suspect]
     Active Substance: CLOZAPINE
     Dosage: 20TH JUNE, 21ST JUNE, 22ND JUNE

REACTIONS (3)
  - Depressed level of consciousness [Unknown]
  - Oxygen saturation decreased [Unknown]
  - Sedation [Unknown]
